FAERS Safety Report 7508061-8 (Version None)
Quarter: 2011Q2

REPORT INFORMATION
  Report Type: 
  Country: None (occurrence: None)
  Receive Date: 20110527
  Receipt Date: 20110511
  Transmission Date: 20111010
  Serious: Yes (Hospitalization, Other)
  Sender: FDA-Public Use
  Company Number: US-BAYER-2010-003139

PATIENT
  Age: 21 Year
  Sex: Female
  Weight: 102.95 kg

DRUGS (17)
  1. OXYCODONE HCL AND ACETAMINOPHEN [Concomitant]
     Indication: PAIN
     Dosage: UNK UNK, TID
     Route: 048
     Dates: start: 20071127
  2. SINGULAIR [Concomitant]
     Dosage: UNK UNK, QD
     Route: 048
  3. DARVOCET-N 50 [Concomitant]
  4. ALBUTEROL SULFATE AUTOHALER [Concomitant]
     Dosage: UNK UNK, QID
  5. DAILY VITAMINS [Concomitant]
     Dosage: UNK UNK, QD
  6. YAZ [Suspect]
     Indication: CONTRACEPTION
     Dosage: UNK
     Dates: start: 20071101, end: 20091101
  7. IBUPROFEN [Concomitant]
     Dosage: 800 MG, UNK
     Dates: start: 20071006
  8. CLINDAMYCIN HCL [Concomitant]
     Dosage: 300 MG, QID
     Dates: start: 20071025
  9. CLARITIN [Concomitant]
     Dosage: UNK UNK, QD
     Route: 048
  10. NASACORT [Concomitant]
  11. ACETAMINOPHEN [Concomitant]
  12. PROPOXYPHENE NAPSYLATE W/ ACETAMINOPHEN [Concomitant]
     Indication: PAIN
     Dosage: UNK
     Route: 048
     Dates: start: 20071006
  13. AMOXICILLIN [Concomitant]
     Dosage: 125 MG, TID
     Route: 048
     Dates: start: 20071011
  14. DIPHENHYDRAMINE HCL [Concomitant]
     Indication: MULTIPLE ALLERGIES
     Dosage: UNK UNK, Q4HR
  15. AUGMENTIN [Concomitant]
     Dosage: UNK UNK, TID
     Route: 048
     Dates: start: 20071011
  16. DOCUSATE SODIUM [Concomitant]
     Dosage: 100 MG, HS
     Route: 048
     Dates: start: 20071006
  17. CLEOCIN [Concomitant]
     Dosage: 300 MG, QID

REACTIONS (4)
  - PAIN [None]
  - CHOLECYSTECTOMY [None]
  - CHOLECYSTITIS CHRONIC [None]
  - PANCREATITIS [None]
